FAERS Safety Report 7268510-X (Version None)
Quarter: 2010Q4

REPORT INFORMATION
  Report Type: 
  Country: None (occurrence: None)
  Receive Date: 20101206
  Receipt Date: 20101008
  Transmission Date: 20110411
  Serious: No
  Sender: FDA-Public Use
  Company Number: 2010SP054177

PATIENT
  Age: 29 Year
  Sex: Male

DRUGS (5)
  1. SAPHRIS [Suspect]
     Indication: BIPOLAR DISORDER
     Dosage: 5 MG;QD;SL, 5 MG;BID;SL
     Route: 060
  2. SAPHRIS [Suspect]
     Indication: DEPRESSION
     Dosage: 5 MG;QD;SL, 5 MG;BID;SL
     Route: 060
  3. WELLBUTRIN [Concomitant]
  4. ESKALITH [Concomitant]
  5. GEODON [Concomitant]

REACTIONS (7)
  - APATHY [None]
  - DEPRESSION [None]
  - DRUG INEFFECTIVE FOR UNAPPROVED INDICATION [None]
  - DYSGEUSIA [None]
  - HYPOAESTHESIA ORAL [None]
  - INAPPROPRIATE SCHEDULE OF DRUG ADMINISTRATION [None]
  - UNDERDOSE [None]
